FAERS Safety Report 7253914-1 (Version None)
Quarter: 2011Q1

REPORT INFORMATION
  Report Type: 
  Country: None (occurrence: None)
  Receive Date: 20110129
  Receipt Date: 20100416
  Transmission Date: 20110831
  Serious: No
  Sender: FDA-Public Use
  Company Number: US-ABBOTT-10P-163-0632461-00

PATIENT
  Sex: Female
  Weight: 58.566 kg

DRUGS (7)
  1. INSULIN [Concomitant]
     Indication: DIABETES MELLITUS
  2. PREDNISONE [Concomitant]
     Indication: OSTEOARTHRITIS
  3. VICODIN [Concomitant]
     Indication: RHEUMATOID ARTHRITIS
     Dates: start: 20090101
  4. ACTOS [Concomitant]
     Indication: DIABETES MELLITUS
  5. VICODIN [Concomitant]
     Indication: OSTEOARTHRITIS
  6. HUMIRA [Suspect]
     Indication: RHEUMATOID ARTHRITIS
     Route: 058
     Dates: start: 20091201, end: 20100226
  7. PREDNISONE [Concomitant]
     Indication: RHEUMATOID ARTHRITIS
     Dates: start: 20080101

REACTIONS (3)
  - DRUG INEFFECTIVE [None]
  - ARTHRALGIA [None]
  - NASOPHARYNGITIS [None]
